FAERS Safety Report 6199836-9 (Version None)
Quarter: 2009Q2

REPORT INFORMATION
  Report Type: 
  Country: None (occurrence: None)
  Receive Date: 20090520
  Receipt Date: 20090520
  Transmission Date: 20091009
  Serious: Yes (Death)
  Sender: FDA-Public Use
  Company Number: None

PATIENT
  Age: 87 Year
  Sex: Male
  Weight: 65.7 kg

DRUGS (2)
  1. HALOPERIDOL [Suspect]
     Indication: VASCULAR OPERATION
     Dosage: 5MG ONCE IV
     Route: 042
     Dates: start: 20090404, end: 20090404
  2. MORPHINE [Suspect]
     Dosage: 2MG ONCE IV
     Route: 042
     Dates: start: 20090404, end: 20090404

REACTIONS (2)
  - CARDIAC ARREST [None]
  - RESPIRATORY DEPRESSION [None]
